FAERS Safety Report 8139331-0 (Version None)
Quarter: 2012Q1

REPORT INFORMATION
  Report Type: 
  Country: None (occurrence: None)
  Receive Date: 20120215
  Receipt Date: 20120207
  Transmission Date: 20120608
  Serious: Yes (Death)
  Sender: FDA-Public Use
  Company Number: US-PFIZER INC-K201100439

PATIENT
  Sex: Female
  Weight: 49.89 kg

DRUGS (8)
  1. AVINZA [Suspect]
     Dosage: UNK
  2. MARIJUANA [Suspect]
     Dosage: UNK
  3. ALPRAZOLAM [Suspect]
     Dosage: UNK
  4. DILAUDID [Suspect]
     Dosage: UNK
  5. COCAINE [Suspect]
     Dosage: UNK
  6. VENLAFAXINE [Suspect]
     Dosage: UNK
  7. CODEINE [Suspect]
     Dosage: UNK
  8. METHAMPHETAMINE HYDROCHLORIDE [Suspect]
     Dosage: UNK

REACTIONS (1)
  - MULTIPLE DRUG OVERDOSE [None]
